FAERS Safety Report 10530719 (Version 6)
Quarter: 2015Q3

REPORT INFORMATION
  Report Type: Spontaneous
  Country: US (occurrence: US)
  Receive Date: 20141021
  Receipt Date: 20150707
  Transmission Date: 20151125
  Serious: Yes (Hospitalization, Other)
  Sender: FDA-Public Use
  Company Number: US-PFIZER INC-2014285497

PATIENT
  Age: 62 Year
  Sex: Female

DRUGS (23)
  1. BIOTIN [Concomitant]
     Active Substance: BIOTIN
     Indication: SUPPLEMENTATION THERAPY
     Dosage: UNK
     Dates: start: 1995
  2. GAS-X [Concomitant]
     Active Substance: DIMETHICONE
     Dosage: UNK, AS NEEDED
     Dates: start: 1995
  3. FISH OIL [Concomitant]
     Active Substance: FISH OIL
     Indication: SUPPLEMENTATION THERAPY
     Dosage: UNK
     Dates: start: 1995
  4. WOMEN OVER 50 + VITAMIN [Concomitant]
     Dosage: UNK
     Dates: start: 1995
  5. GARLIC. [Concomitant]
     Active Substance: GARLIC
     Dosage: UNK
     Dates: start: 1995
  6. ATORVASTATIN [Concomitant]
     Active Substance: ATORVASTATIN
     Dosage: 10 MG, 1X/DAY
     Dates: start: 2015
  7. FIBER CHOICE [Concomitant]
     Dosage: UNK
     Dates: start: 2014
  8. AMLODIPINE [Concomitant]
     Active Substance: AMLODIPINE BESYLATE
     Dosage: 10 MG, 1X/DAY
     Dates: start: 1995
  9. OXYBUTYNIN [Concomitant]
     Active Substance: OXYBUTYNIN
     Indication: URINARY INCONTINENCE
     Dosage: 5 MG, 3X/DAY
     Dates: start: 1995
  10. POTASSIUM CHLORIDE. [Concomitant]
     Active Substance: POTASSIUM CHLORIDE
     Dosage: 20 MEQ, 3X/DAY
     Route: 048
     Dates: start: 2001
  11. ETODOLAC. [Concomitant]
     Active Substance: ETODOLAC
     Indication: ARTHRITIS
     Dosage: 400 MG, 2X/DAY
     Route: 048
     Dates: start: 2014
  12. VITAMIN B12 [Concomitant]
     Active Substance: CYANOCOBALAMIN
     Dosage: UNK
     Dates: start: 1995
  13. GLUCOSAMINE [Concomitant]
     Active Substance: GLUCOSAMINE
     Indication: SUPPLEMENTATION THERAPY
     Dosage: UNK
     Dates: start: 1995
  14. LOSARTAN/HCT [Concomitant]
     Active Substance: HYDROCHLOROTHIAZIDE\LOSARTAN POTASSIUM
     Dosage: (12.5/50), 1X/DAY
     Dates: start: 1995
  15. HYDROCODONE/ACETAMINOPHEN [Concomitant]
     Active Substance: ACETAMINOPHEN\HYDROCODONE
     Indication: ARTHRALGIA
     Dosage: (5/325), 1 TO 2 EVERY 4-6 HOURS
     Route: 048
  16. VITAMIN E [Concomitant]
     Active Substance: .ALPHA.-TOCOPHEROL
     Indication: SUPPLEMENTATION THERAPY
     Dosage: UNK
     Dates: start: 1995
  17. MIRTAZAPINE. [Concomitant]
     Active Substance: MIRTAZAPINE
     Indication: SLEEP DISORDER
     Dosage: 30 MG, 1X/DAY (NIGHT)
     Dates: start: 1995
  18. ASPIRIN. [Concomitant]
     Active Substance: ASPIRIN
     Indication: CARDIOVASCULAR EVENT PROPHYLAXIS
     Dosage: 81 MG, UNK
     Route: 048
     Dates: start: 2014
  19. AROMASIN [Suspect]
     Active Substance: EXEMESTANE
     Indication: BREAST CANCER
     Dosage: 25 MG, 1X/DAY
     Route: 048
     Dates: start: 2013
  20. OMEPRAZOLE. [Concomitant]
     Active Substance: OMEPRAZOLE
     Dosage: 40 MG, 1X/DAY
     Dates: start: 1995
  21. VITAMIN A [Concomitant]
     Active Substance: VITAMIN A
     Indication: SUPPLEMENTATION THERAPY
     Dosage: UNK
     Dates: start: 1995
  22. CALCIUM [Concomitant]
     Active Substance: CALCIUM
     Indication: SUPPLEMENTATION THERAPY
     Dosage: 600 MG, UNK
     Dates: start: 1995
  23. ESTER C [Concomitant]
     Dosage: UNK
     Dates: start: 1995

REACTIONS (6)
  - Fall [Recovered/Resolved]
  - Haematochezia [Recovered/Resolved]
  - Fatigue [Unknown]
  - Arthralgia [Not Recovered/Not Resolved]
  - Weight increased [Recovering/Resolving]
  - Alopecia [Not Recovered/Not Resolved]

NARRATIVE: CASE EVENT DATE: 201311
